FAERS Safety Report 9889114 (Version 1)
Quarter: 2014Q1

REPORT INFORMATION
  Report Type: Spontaneous
  Country: TH (occurrence: TH)
  Receive Date: 20140211
  Receipt Date: 20140211
  Transmission Date: 20141002
  Serious: Yes (Other)
  Sender: FDA-Public Use
  Company Number: TH-BAYER-2014-017072

PATIENT
  Age: 38 Year
  Sex: Female

DRUGS (3)
  1. YAZ [Suspect]
     Indication: CONTRACEPTION
     Dosage: UNK
     Route: 048
     Dates: start: 20140101, end: 20140124
  2. FLUOXETINE [Concomitant]
     Indication: DEPRESSION
     Dosage: UNK
  3. TRANXENE [Concomitant]
     Indication: DEPRESSION
     Dosage: UNK

REACTIONS (8)
  - Gastric ulcer [Not Recovered/Not Resolved]
  - Nausea [Not Recovered/Not Resolved]
  - Decreased appetite [Not Recovered/Not Resolved]
  - Weight decreased [Not Recovered/Not Resolved]
  - Syncope [Not Recovered/Not Resolved]
  - Dyspnoea [Not Recovered/Not Resolved]
  - Dizziness [Not Recovered/Not Resolved]
  - Abnormal withdrawal bleeding [Not Recovered/Not Resolved]
